FAERS Safety Report 6823954-2 (Version None)
Quarter: 2010Q3

REPORT INFORMATION
  Report Type: 
  Country: None (occurrence: None)
  Receive Date: 20100708
  Receipt Date: 20060920
  Transmission Date: 20110219
  Serious: No
  Sender: FDA-Public Use
  Company Number: US-PFIZER INC-2006114425

PATIENT
  Sex: Male
  Weight: 76.2 kg

DRUGS (4)
  1. CHANTIX [Suspect]
     Indication: EX-TOBACCO USER
     Dates: start: 20060801
  2. ASPIRIN [Concomitant]
  3. COMBIVENT [Concomitant]
  4. ADVAIR DISKUS 100/50 [Concomitant]

REACTIONS (3)
  - ABDOMINAL DISTENSION [None]
  - INSOMNIA [None]
  - POLLAKIURIA [None]
